FAERS Safety Report 8442876 (Version 7)
Quarter: 2013Q4

REPORT INFORMATION
  Report Type: Report from Study
  Country: US (occurrence: US)
  Receive Date: 20120306
  Receipt Date: 20131001
  Transmission Date: 20140711
  Serious: Yes (Hospitalization, Other)
  Sender: FDA-Public Use
  Company Number: US-ACTELION-A-NJ2012-60088

PATIENT
  Age: 56 Year
  Sex: Male

DRUGS (15)
  1. TRACLEER [Suspect]
     Indication: PULMONARY ARTERIAL HYPERTENSION
     Dosage: 125 MG, BID
     Route: 048
     Dates: start: 201111
  2. TRACLEER [Suspect]
     Dosage: 62.5 MG, BID
     Route: 048
     Dates: start: 20111014, end: 201111
  3. NOVOLOG [Concomitant]
  4. ZINC [Concomitant]
  5. ALLOPURINOL [Concomitant]
     Dosage: 100 MG, UNK
     Dates: start: 2008
  6. SENSIPAR [Concomitant]
     Dosage: 30 MG, UNK
     Dates: start: 2011
  7. MULTI-VITAMINS VITAFIT [Concomitant]
  8. RENVELA [Concomitant]
     Dosage: 800 MG, 4 TABS WITH MEALS
     Dates: start: 2011
  9. PROTONIX [Concomitant]
  10. VITAMIN C [Concomitant]
  11. PERCOCET [Concomitant]
  12. ASA [Concomitant]
  13. PRAMIPEXOLE [Concomitant]
     Dosage: 1 MG, UNK
     Dates: start: 2011
  14. GABAPENTIN [Concomitant]
     Dosage: 100 MG, UNK
     Dates: start: 2011
  15. PRAVASTATIN [Concomitant]
     Dosage: 40 MG, UNK
     Dates: start: 2011

REACTIONS (17)
  - Hypotension [Unknown]
  - Post procedural complication [Not Recovered/Not Resolved]
  - Decubitus ulcer [Not Recovered/Not Resolved]
  - Poor peripheral circulation [Unknown]
  - Pulmonary oedema [Recovering/Resolving]
  - Dyspnoea [Recovering/Resolving]
  - Oedema [Recovering/Resolving]
  - Skin ulcer [Recovered/Resolved]
  - Leg amputation [Recovering/Resolving]
  - Pyrexia [Recovering/Resolving]
  - Anaemia [Not Recovered/Not Resolved]
  - Haemoglobin decreased [Not Recovered/Not Resolved]
  - Haematocrit decreased [Not Recovered/Not Resolved]
  - Red blood cell count decreased [Not Recovered/Not Resolved]
  - Transfusion [Not Recovered/Not Resolved]
  - Fluid overload [Recovering/Resolving]
  - Wound [Recovering/Resolving]
